FAERS Safety Report 4762749-0 (Version None)
Quarter: 2005Q3

REPORT INFORMATION
  Report Type: 
  Country: None (occurrence: None)
  Receive Date: 20050907
  Receipt Date: 20050823
  Transmission Date: 20060218
  Serious: Yes (Death)
  Sender: FDA-Public Use
  Company Number: JP-MERCK-0508USA04524

PATIENT
  Age: 61 Year
  Sex: Male

DRUGS (5)
  1. PEPCID [Suspect]
     Route: 048
  2. DEXAMETHASONE [Concomitant]
     Route: 065
  3. CHLORPHENIRAMINE MALEATE [Concomitant]
     Route: 065
  4. ANTINEOPLASTIC (UNSPECIFIED) [Concomitant]
     Route: 065
  5. PACLITAXEL [Suspect]
     Route: 065

REACTIONS (1)
  - PNEUMONITIS [None]
